FAERS Safety Report 25160622 (Version 1)
Quarter: 2025Q2

REPORT INFORMATION
  Report Type: Spontaneous
  Country: US (occurrence: US)
  Receive Date: 20250404
  Receipt Date: 20250404
  Transmission Date: 20250717
  Serious: Yes (Life-Threatening, Hospitalization, Other)
  Sender: LUPIN
  Company Number: US-LUPIN PHARMACEUTICALS INC.-2025-02849

PATIENT
  Age: 43 Year
  Sex: Female

DRUGS (6)
  1. DULOXETINE [Interacting]
     Active Substance: DULOXETINE
     Indication: Anxiety
     Route: 065
  2. DULOXETINE [Interacting]
     Active Substance: DULOXETINE
     Indication: Depression
  3. ASENAPINE [Interacting]
     Active Substance: ASENAPINE
     Indication: Mood swings
     Route: 065
  4. TRAZODONE [Interacting]
     Active Substance: TRAZODONE HYDROCHLORIDE
     Indication: Insomnia
     Route: 065
  5. DIPHENHYDRAMINE [Interacting]
     Active Substance: DIPHENHYDRAMINE
     Indication: Insomnia
     Route: 065
  6. FENTANYL [Suspect]
     Active Substance: FENTANYL
     Indication: Product used for unknown indication
     Route: 065

REACTIONS (2)
  - Serotonin syndrome [Recovering/Resolving]
  - Drug interaction [Unknown]
